FAERS Safety Report 4528839-2 (Version None)
Quarter: 2004Q4

REPORT INFORMATION
  Report Type: 
  Country: None (occurrence: None)
  Receive Date: 20041214
  Receipt Date: 20041123
  Transmission Date: 20050328
  Serious: Yes (Life-Threatening, Hospitalization)
  Sender: FDA-Public Use
  Company Number: F01200403741

PATIENT
  Age: 68 Year
  Sex: Male

DRUGS (4)
  1. (OXALIPLATIN) - SOLUTION - 130 MG/M2 [Suspect]
     Indication: COLORECTAL CANCER METASTATIC
     Dosage: 243 MG Q3W
     Route: 042
     Dates: start: 20041110, end: 20041110
  2. (CAPECITABINE) - TABLET - 1000 MG/M2 [Suspect]
     Dosage: 3600 MG (1000 MG/M2 TWICE DAILY FROM DAY 1 TO DAY 15, Q3W)
     Route: 048
     Dates: start: 20041110, end: 20041119
  3. ENOXAPARIN SODIUM [Concomitant]
  4. EMCONOR (BISOPROLOL) [Concomitant]

REACTIONS (1)
  - CEREBRAL HAEMATOMA [None]
